FAERS Safety Report 8414455-9 (Version None)
Quarter: 2012Q2

REPORT INFORMATION
  Report Type: 
  Country: None (occurrence: None)
  Receive Date: 20120605
  Receipt Date: 20120530
  Transmission Date: 20120825
  Serious: Yes (Death, Life-Threatening, Hospitalization)
  Sender: FDA-Public Use
  Company Number: US-MILLENNIUM PHARMACEUTICALS, INC.-2011-03500

PATIENT
  Sex: Male
  Weight: 102.6 kg

DRUGS (27)
  1. FILGRASTIM [Concomitant]
     Indication: WHITE BLOOD CELL COUNT
     Dosage: 480 UG, QD
     Route: 058
  2. METHOTREXATE [Suspect]
     Dosage: 1600 MG, CYCLIC
     Route: 042
     Dates: end: 20110728
  3. ADRIAMYCIN PFS [Suspect]
     Indication: MANTLE CELL LYMPHOMA
     Dosage: 101 MG, CYCLIC
     Route: 042
     Dates: start: 20110705, end: 20110705
  4. FERROUS SULFATE TAB [Concomitant]
     Indication: SUPPLEMENTATION THERAPY
     Dosage: 325 MG, QD
     Route: 048
  5. HEPARIN [Concomitant]
     Indication: PROPHYLAXIS
     Dosage: 2 ML, QD
  6. SENOKOT [Concomitant]
     Indication: CONSTIPATION
     Dosage: UNK
     Route: 048
  7. TRIAMCINOLONE ACETONIDE [Concomitant]
     Indication: RASH
     Dosage: UNK
     Route: 061
  8. COMPAZINE [Concomitant]
     Indication: PROPHYLAXIS OF NAUSEA AND VOMITING
     Dosage: 10 MG, PRN
     Route: 048
  9. RITUXIMAB [Suspect]
     Indication: MANTLE CELL LYMPHOMA
     Dosage: 750 MG, CYCLIC
     Route: 042
     Dates: start: 20110701, end: 20110726
  10. METHOTREXATE [Suspect]
     Indication: MANTLE CELL LYMPHOMA
     Dosage: 400 MG, CYCLIC
     Route: 042
     Dates: end: 20110727
  11. CYTARABINE [Suspect]
     Indication: MANTLE CELL LYMPHOMA
     Dosage: 6 G, CYCLIC
     Route: 042
     Dates: end: 20110730
  12. CIPROFLOXACIN [Concomitant]
     Indication: INFECTION PROPHYLAXIS
     Dosage: 500 MG, BID
     Route: 048
  13. FLUCONAZOLE [Concomitant]
     Indication: INFECTION PROPHYLAXIS
     Dosage: 100 MG, QD
     Route: 048
  14. OMEPRAZOLE [Concomitant]
     Indication: GASTROOESOPHAGEAL REFLUX DISEASE
     Dosage: 20 MG, BID
     Route: 048
  15. MESNA [Concomitant]
     Indication: MANTLE CELL LYMPHOMA
  16. DEXAMETHASONE [Suspect]
     Indication: MANTLE CELL LYMPHOMA
     Dosage: 40 MG, CYCLIC
  17. DEXAMETHASONE [Suspect]
     Dosage: 20 UNK, UNK
     Route: 048
     Dates: end: 20110715
  18. PREVIDENT [Concomitant]
     Indication: DENTAL CARE
     Dosage: 1.1 %, QD
  19. VINCRISTINE [Suspect]
     Indication: MANTLE CELL LYMPHOMA
     Dosage: 2 MG, CYCLIC
     Route: 042
     Dates: start: 20110705, end: 20110712
  20. VALTREX [Concomitant]
     Indication: INFECTION PROPHYLAXIS
     Dosage: 500 MG, QD
     Route: 048
  21. VITAMIN C                          /00008001/ [Concomitant]
     Indication: SUPPLEMENTATION THERAPY
     Dosage: UNK
     Route: 048
  22. VELCADE [Suspect]
     Indication: MANTLE CELL LYMPHOMA
     Dosage: 2.6 MG, CYCLIC
     Route: 040
     Dates: start: 20110701, end: 20110726
  23. CYCLOPHOSPHAMIDE [Suspect]
     Indication: MANTLE CELL LYMPHOMA
     Dosage: 603 MG, CYCLIC
     Route: 042
     Dates: start: 20110702, end: 20110704
  24. METHYLPREDNISOLONE [Concomitant]
     Indication: PRODUCT USED FOR UNKNOWN INDICATION
     Dosage: UNK
     Route: 048
  25. PERIOGARD [Concomitant]
     Indication: DENTAL CARE
     Dosage: 15 ML, BID
  26. ULTRAM [Concomitant]
     Indication: PAIN
     Dosage: 50 MG, PRN
     Route: 048
  27. VITAMIN D [Concomitant]
     Indication: SUPPLEMENTATION THERAPY
     Dosage: 1000 UNK, QD
     Route: 048

REACTIONS (6)
  - CARDIO-RESPIRATORY ARREST [None]
  - TROPONIN I INCREASED [None]
  - THROMBOCYTOPENIA [None]
  - INFECTION [None]
  - ANAEMIA [None]
  - RESPIRATORY FAILURE [None]
